FAERS Safety Report 6248824-2 (Version None)
Quarter: 2009Q2

REPORT INFORMATION
  Report Type: 
  Country: None (occurrence: None)
  Receive Date: 20090629
  Receipt Date: 20090617
  Transmission Date: 20091009
  Serious: Yes (Death, Other)
  Sender: FDA-Public Use
  Company Number: US-ELI_LILLY_AND_COMPANY-US200906004388

PATIENT
  Sex: Female

DRUGS (3)
  1. ZYPREXA [Suspect]
     Indication: BIPOLAR DISORDER
     Dosage: 30 MG, UNK
  2. SYMBYAX [Suspect]
     Dosage: 1 D/F, UNK
  3. LEXAPRO [Concomitant]
     Dates: end: 20090528

REACTIONS (3)
  - DEATH [None]
  - DIABETIC COMA [None]
  - OVERDOSE [None]
